FAERS Safety Report 10234810 (Version 2)
Quarter: 2014Q2

REPORT INFORMATION
  Report Type: Spontaneous
  Country: US (occurrence: US)
  Receive Date: 20140613
  Receipt Date: 20140613
  Transmission Date: 20141212
  Serious: No
  Sender: FDA-Public Use
  Company Number: US-TEVA-458822USA

PATIENT
  Sex: Female

DRUGS (1)
  1. IRBESARTAN [Suspect]

REACTIONS (3)
  - Drug ineffective [Unknown]
  - Blood pressure inadequately controlled [Unknown]
  - Drug effect decreased [Unknown]
